FAERS Safety Report 16404629 (Version 2)
Quarter: 2019Q2

REPORT INFORMATION
  Report Type: Spontaneous
  Country: US (occurrence: US)
  Receive Date: 20190607
  Receipt Date: 20190611
  Transmission Date: 20190711
  Serious: Yes (Disabling)
  Sender: FDA-Public Use
  Company Number: US-ALLERGAN-1923807US

PATIENT
  Sex: Female

DRUGS (2)
  1. CARIPRAZINE HCL - BP [Suspect]
     Active Substance: CARIPRAZINE HYDROCHLORIDE
     Indication: BIPOLAR I DISORDER
     Dosage: 3 MG, QD
     Route: 048
  2. CARIPRAZINE HCL - BP [Suspect]
     Active Substance: CARIPRAZINE HYDROCHLORIDE
     Indication: DEPRESSION
     Dosage: 1.5 MG, QD
     Route: 048

REACTIONS (3)
  - Menstrual disorder [Recovering/Resolving]
  - Akathisia [Recovering/Resolving]
  - Off label use [Unknown]
